FAERS Safety Report 4516438-8 (Version None)
Quarter: 2004Q4

REPORT INFORMATION
  Report Type: 
  Country: None (occurrence: None)
  Receive Date: 20041202
  Receipt Date: 20040706
  Transmission Date: 20050328
  Serious: No
  Sender: FDA-Public Use
  Company Number: US-GLAXOSMITHKLINE-A0517057A

PATIENT
  Age: 48 Year
  Sex: Male

DRUGS (2)
  1. AUGMENTIN XR [Suspect]
     Indication: ACUTE SINUSITIS
     Dosage: 2TAB TWICE PER DAY
     Route: 048
     Dates: start: 20040326, end: 20040405
  2. NO CONCURRENT MEDICATION [Concomitant]

REACTIONS (15)
  - ABDOMINAL PAIN UPPER [None]
  - BIPOLAR DISORDER [None]
  - BLOOD TESTOSTERONE DECREASED [None]
  - BURNING SENSATION [None]
  - DIARRHOEA [None]
  - DISABILITY [None]
  - DISSOCIATION [None]
  - DIZZINESS [None]
  - ELECTROLYTE IMBALANCE [None]
  - HYPOAESTHESIA [None]
  - INFLUENZA LIKE ILLNESS [None]
  - ORAL CANDIDIASIS [None]
  - PARAESTHESIA [None]
  - VOMITING [None]
  - WEIGHT DECREASED [None]
